FAERS Safety Report 9996690 (Version 1)
Quarter: 2014Q1

REPORT INFORMATION
  Report Type: Spontaneous
  Country: US (occurrence: US)
  Receive Date: 20140311
  Receipt Date: 20140311
  Transmission Date: 20141002
  Serious: No
  Sender: FDA-Public Use
  Company Number: US-GLAXOSMITHKLINE-A1014289A

PATIENT
  Sex: Female

DRUGS (2)
  1. NICORETTE OTC 4MG [Suspect]
     Indication: PRODUCT USED FOR UNKNOWN INDICATION
  2. NICODERM CQ [Suspect]
     Indication: PRODUCT USED FOR UNKNOWN INDICATION

REACTIONS (4)
  - Tension [Unknown]
  - Euphoric mood [Unknown]
  - Overdose [Unknown]
  - Drug administration error [Unknown]
